FAERS Safety Report 14016254 (Version 1)
Quarter: 2017Q3

REPORT INFORMATION
  Report Type: Spontaneous
  Country: US (occurrence: US)
  Receive Date: 20170927
  Receipt Date: 20170927
  Transmission Date: 20171128
  Serious: No
  Sender: FDA-Public Use
  Company Number: US-SA-2016SA210397

PATIENT
  Age: 45 Year
  Sex: Female
  Weight: 99.33 kg

DRUGS (13)
  1. CLARITIN [Concomitant]
     Active Substance: LORATADINE
  2. ACYCLOVIR. [Concomitant]
     Active Substance: ACYCLOVIR
     Dosage: PREVENT IT FASTER
     Dates: start: 201512
  3. LYRICA [Concomitant]
     Active Substance: PREGABALIN
  4. ZOLOFT [Concomitant]
     Active Substance: SERTRALINE HYDROCHLORIDE
  5. LANTUS [Concomitant]
     Active Substance: INSULIN GLARGINE
  6. ZOCOR [Concomitant]
     Active Substance: SIMVASTATIN
  7. VITAMIN D2 [Concomitant]
     Active Substance: ERGOCALCIFEROL
  8. LOVENOX [Concomitant]
     Active Substance: ENOXAPARIN SODIUM
  9. PREGABALIN. [Concomitant]
     Active Substance: PREGABALIN
  10. COLACE [Concomitant]
     Active Substance: DOCUSATE SODIUM
  11. SENOKOT [Concomitant]
     Active Substance: SENNOSIDES
  12. PERCOCET [Concomitant]
     Active Substance: ACETAMINOPHEN\OXYCODONE HYDROCHLORIDE
     Dosage: 5/325
  13. LEMTRADA [Suspect]
     Active Substance: ALEMTUZUMAB
     Indication: MULTIPLE SCLEROSIS
     Route: 041
     Dates: start: 20151115, end: 20151119

REACTIONS (3)
  - Skin disorder [Not Recovered/Not Resolved]
  - Ill-defined disorder [Not Recovered/Not Resolved]
  - Papule [Not Recovered/Not Resolved]

NARRATIVE: CASE EVENT DATE: 20161201
